FAERS Safety Report 6588578-3 (Version None)
Quarter: 2010Q1

REPORT INFORMATION
  Report Type: 
  Country: None (occurrence: None)
  Receive Date: 20100218
  Receipt Date: 20100211
  Transmission Date: 20100710
  Serious: Yes (Death)
  Sender: FDA-Public Use
  Company Number: US-GILEAD-2010-0027035

PATIENT
  Sex: Female
  Weight: 59.02 kg

DRUGS (13)
  1. LETAIRIS [Suspect]
     Indication: PULMONARY ARTERIAL HYPERTENSION
     Dates: start: 20080605
  2. TORSEMIDE [Concomitant]
  3. SPIRONOLACTONE [Concomitant]
  4. XANAX [Concomitant]
  5. DILAUDID [Concomitant]
  6. HUMIRA [Concomitant]
  7. ZANTAC [Concomitant]
  8. CALCIUM + D [Concomitant]
  9. AMITRIPTYLINE HCL [Concomitant]
  10. CELEXA [Concomitant]
  11. COLCHICINE [Concomitant]
  12. KLOR-CON [Concomitant]
  13. LEVOTHYROXINE SODIUM [Concomitant]

REACTIONS (1)
  - DEATH [None]
